FAERS Safety Report 25044646 (Version 1)
Quarter: 2025Q1

REPORT INFORMATION
  Report Type: Spontaneous
  Country: ES (occurrence: ES)
  Receive Date: 20250306
  Receipt Date: 20250306
  Transmission Date: 20250409
  Serious: Yes (Other)
  Sender: BIOVITRUM
  Company Number: ES-BIOVITRUM-2025-ES-002862

PATIENT
  Age: 58 Year

DRUGS (1)
  1. DOPTELET [Suspect]
     Active Substance: AVATROMBOPAG MALEATE
     Indication: Immune thrombocytopenia

REACTIONS (5)
  - Loss of consciousness [Unknown]
  - Dizziness [Unknown]
  - Nausea [Unknown]
  - Chest pain [Unknown]
  - Platelet count abnormal [Unknown]

NARRATIVE: CASE EVENT DATE: 20250201
